FAERS Safety Report 20129737 (Version 1)
Quarter: 2021Q4

REPORT INFORMATION
  Report Type: Spontaneous
  Country: US (occurrence: None)
  Receive Date: 20211129
  Receipt Date: 20211129
  Transmission Date: 20220303
  Serious: Yes (Hospitalization)
  Sender: FDA-Public Use
  Company Number: None

PATIENT
  Age: 85 Year
  Sex: Male
  Weight: 76.7 kg

DRUGS (1)
  1. BAMLANIVIMAB\ETESEVIMAB [Suspect]
     Active Substance: BAMLANIVIMAB\ETESEVIMAB
     Indication: COVID-19
     Dates: start: 20211122, end: 20211122

REACTIONS (3)
  - Drug monitoring procedure incorrectly performed [None]
  - Wrong technique in product usage process [None]
  - Product administration error [None]

NARRATIVE: CASE EVENT DATE: 20211122
